APPROVED DRUG PRODUCT: DESMOPRESSIN ACETATE
Active Ingredient: DESMOPRESSIN ACETATE
Strength: 0.1MG
Dosage Form/Route: TABLET;ORAL
Application: A076470 | Product #001
Applicant: ACTAVIS LABORATORIES FL INC
Approved: Jul 1, 2005 | RLD: No | RS: No | Type: DISCN